FAERS Safety Report 10247976 (Version 1)
Quarter: 2014Q2

REPORT INFORMATION
  Report Type: Spontaneous
  Country: US (occurrence: US)
  Receive Date: 20140619
  Receipt Date: 20140619
  Transmission Date: 20141212
  Serious: No
  Sender: FDA-Public Use
  Company Number: US-GILEAD-2014-0105813

PATIENT
  Sex: Male

DRUGS (4)
  1. LETAIRIS [Suspect]
     Indication: PRODUCT USED FOR UNKNOWN INDICATION
     Dosage: 10 MG, QD
     Dates: start: 20140311
  2. LETAIRIS [Suspect]
     Dosage: 10 MG, QD
     Route: 065
     Dates: start: 20100929
  3. ADCIRCA [Concomitant]
  4. TYVASO [Concomitant]

REACTIONS (2)
  - Feeling hot [Unknown]
  - Erythema [Unknown]
